FAERS Safety Report 9263539 (Version 1)
Quarter: 2013Q2

REPORT INFORMATION
  Report Type: Spontaneous
  Country: US (occurrence: None)
  Receive Date: 20130426
  Receipt Date: 20130426
  Transmission Date: 20140414
  Serious: Yes (Life-Threatening, Hospitalization)
  Sender: FDA-Public Use
  Company Number: FK201301250

PATIENT
  Age: 46 Year
  Sex: Female
  Weight: 98 kg

DRUGS (21)
  1. HEPARIN SODIUM INJECTION [Suspect]
     Indication: ANTICOAGULANT THERAPY
     Dosage: 5000 UT
     Route: 058
  2. COUMADIN (WARFARIN SODIUM) [Suspect]
     Indication: PULMONARY EMBOLISM
  3. SILVADENE (SULFADIAZINE SILVER) [Concomitant]
  4. OXYCODONE (OXYCODONE) [Concomitant]
  5. LACTOSE (LACTOSE) [Concomitant]
  6. ALBUTEROL [Concomitant]
  7. CEFAZOLIN (CEFAZOLIN) [Concomitant]
  8. DAPTOMYCIN (DAPTOMYCIN) [Concomitant]
  9. CLINDAMYCIN (CLINDAMYCIN) [Concomitant]
  10. FLUARIX [Concomitant]
  11. PNEUMOVAX (PNEUMOCOCCAL VACCINE) [Concomitant]
  12. DUONEB (COMBIVENT/01261001/) [Concomitant]
  13. COLACE [Concomitant]
  14. DILAUDID (HYDROMORPHONE HYDROCHLORIDE) [Concomitant]
  15. TYLENOL (PARACETAMOL) [Concomitant]
  16. SINGULAIR [Concomitant]
  17. PERCOCET (TYLOX/00446701/) [Concomitant]
  18. PULMICORT (BUDESONIDE) [Concomitant]
  19. BETAMETHASONE (BETAMETHASONE) [Concomitant]
  20. PEPCID (FAMOTIDINE) [Concomitant]
  21. METOPROLOL (METOPROLOL) [Concomitant]

REACTIONS (7)
  - Cardio-respiratory arrest [None]
  - Respiratory failure [None]
  - Deep vein thrombosis [None]
  - Heparin-induced thrombocytopenia [None]
  - Pulmonary embolism [None]
  - Anaphylactoid reaction [None]
  - Cellulitis [None]
